FAERS Safety Report 8734428 (Version 2)
Quarter: 2014Q4

REPORT INFORMATION
  Report Type: Spontaneous
  Country: US (occurrence: US)
  Receive Date: 20120821
  Receipt Date: 20141110
  Transmission Date: 20150529
  Serious: Yes (Hospitalization, Other)
  Sender: FDA-Public Use
  Company Number: US-GLAXOSMITHKLINE-A0744979A

PATIENT
  Sex: Female

DRUGS (28)
  1. ALBUTEROL. [Concomitant]
     Active Substance: ALBUTEROL
  2. SIMVASTATIN. [Concomitant]
     Active Substance: SIMVASTATIN
  3. HYDROCODONE [Concomitant]
     Active Substance: HYDROCODONE
  4. IPRATROPIUM BROMIDE. [Concomitant]
     Active Substance: IPRATROPIUM BROMIDE
  5. PROPOXYPHENE. [Concomitant]
     Active Substance: PROPOXYPHENE HYDROCHLORIDE
  6. ENALAPRIL [Concomitant]
     Active Substance: ENALAPRIL
  7. METOPROLOL [Concomitant]
     Active Substance: METOPROLOL
  8. AMOXICILLIN. [Concomitant]
     Active Substance: AMOXICILLIN
  9. AZITHROMYCIN [Concomitant]
     Active Substance: AZITHROMYCIN ANHYDROUS
  10. CYCLOBENZAPRINE [Concomitant]
     Active Substance: CYCLOBENZAPRINE
  11. LOTREL [Concomitant]
     Active Substance: AMLODIPINE BESYLATE\BENAZEPRIL HYDROCHLORIDE
  12. ZETIA [Concomitant]
     Active Substance: EZETIMIBE
  13. AVANDIA [Suspect]
     Active Substance: ROSIGLITAZONE MALEATE
     Indication: TYPE 2 DIABETES MELLITUS
     Dosage: 4 MG, BID
     Route: 048
     Dates: start: 2005, end: 2007
  14. ACETAMINOPHEN. [Concomitant]
     Active Substance: ACETAMINOPHEN
  15. ADVAIR HFA [Concomitant]
     Active Substance: FLUTICASONE PROPIONATE\SALMETEROL XINAFOATE
  16. AMITRIPTYLINE [Concomitant]
     Active Substance: AMITRIPTYLINE
  17. NICOTINE TRANSDERMAL SYSTEM [Concomitant]
     Active Substance: NICOTINE
  18. POTASSIUM CHLORIDE. [Concomitant]
     Active Substance: POTASSIUM CHLORIDE
  19. BENAZEPRIL [Concomitant]
     Active Substance: BENAZEPRIL\BENAZEPRIL HYDROCHLORIDE
  20. FLUCONAZOLE. [Concomitant]
     Active Substance: FLUCONAZOLE
  21. KLOR CON [Concomitant]
  22. GLUCOTROL [Concomitant]
     Active Substance: GLIPIZIDE
     Dates: start: 2006
  23. GRIS-PEG [Concomitant]
     Active Substance: GRISEOFULVIN
  24. KETOROLAC [Concomitant]
     Active Substance: KETOROLAC\KETOROLAC TROMETHAMINE
  25. PREMPRO [Concomitant]
     Active Substance: ESTROGENS, CONJUGATED\MEDROXYPROGESTERONE ACETATE
  26. AVANDAMET [Suspect]
     Active Substance: METFORMIN HYDROCHLORIDE\ROSIGLITAZONE MALEATE
     Indication: DIABETES MELLITUS
     Dosage: UNK
     Route: 048
     Dates: start: 20050803
  27. FUROSEMIDE. [Concomitant]
     Active Substance: FUROSEMIDE
  28. SPIRIVA [Concomitant]
     Active Substance: TIOTROPIUM BROMIDE MONOHYDRATE

REACTIONS (4)
  - Cardiac failure congestive [Unknown]
  - Myocardial infarction [Unknown]
  - Coronary artery disease [Unknown]
  - Ischaemic cardiomyopathy [Unknown]
